FAERS Safety Report 8036370-5 (Version None)
Quarter: 2012Q1

REPORT INFORMATION
  Report Type: 
  Country: None (occurrence: None)
  Receive Date: 20120106
  Receipt Date: 20111222
  Transmission Date: 20120608
  Serious: Yes (Hospitalization)
  Sender: FDA-Public Use
  Company Number: 2012010004

PATIENT
  Age: 51 Year
  Sex: Male

DRUGS (9)
  1. BISOPROLOL FUMARATE [Suspect]
     Indication: SUICIDE ATTEMPT
     Dosage: (INTAKE NOT PROVEN), ORAL
     Route: 048
  2. RAMIPRIL [Suspect]
     Indication: SUICIDE ATTEMPT
     Dosage: (INTAKE NOT PROVEN), ORAL
     Route: 048
  3. SIMVASTATIN [Suspect]
     Indication: SUICIDE ATTEMPT
     Dosage: (INTAKE NOT PROVEN), ORAL
     Route: 048
  4. SPIRONOLACTONE [Suspect]
     Indication: SUICIDE ATTEMPT
     Dosage: (INTAKE NOT PROVEN), ORAL
     Route: 048
  5. TORSEMIDE [Suspect]
     Indication: SUICIDE ATTEMPT
     Dosage: (INTAKE NOT PROVEN), ORAL
     Route: 048
  6. LYRICA [Suspect]
     Indication: SUICIDE ATTEMPT
     Dosage: (INTAKE NOT PROVEN), ORAL
     Route: 048
  7. ASPIRIN [Suspect]
     Indication: SUICIDE ATTEMPT
     Dosage: (INTAKE NOT PROVEN), ORAL
     Route: 048
  8. NOVAMINSULFON (METAMIZOLE SODIUM) [Suspect]
     Indication: SUICIDE ATTEMPT
     Dosage: (INTAKE NOT PROVEN), ORAL
     Route: 048
  9. MARCUMAR [Suspect]
     Indication: SUICIDE ATTEMPT
     Dosage: (INTAKE NOT PROVEN), ORAL
     Route: 048

REACTIONS (4)
  - LACRIMATION INCREASED [None]
  - AGITATION [None]
  - INTENTIONAL DRUG MISUSE [None]
  - SUICIDE ATTEMPT [None]
